FAERS Safety Report 5244815-9 (Version None)
Quarter: 2007Q1

REPORT INFORMATION
  Report Type: 
  Country: None (occurrence: None)
  Receive Date: 20070216
  Receipt Date: 20070208
  Transmission Date: 20070707
  Serious: Yes (Other)
  Sender: FDA-Public Use
  Company Number: GXKR2007CH01553

PATIENT
  Age: 81 Year
  Sex: Male

DRUGS (6)
  1. METOPROLOL SUCCINATE [Suspect]
     Indication: ESSENTIAL HYPERTENSION
     Dosage: 50 MG, QD; ORAL
     Route: 048
     Dates: end: 20061101
  2. LITHIOFOR/01629101/ (LITHIUM, LITHIUM SULFATE) [Suspect]
     Dosage: 330 MG, BID; ORAL
     Route: 048
     Dates: end: 20061101
  3. ENALAPRIL MALEATE [Concomitant]
  4. PANTOZOL (PANTOPRAZOLE SODIUM) TABLET [Concomitant]
  5. CALCIMAGON-D3 (CALCIUM CARBONATE, COLECALCIFEROL) CHEWABLE TABLET [Concomitant]
  6. METAMUCIL (ISPAGHULA, PLANTAGO OVATA) [Concomitant]

REACTIONS (3)
  - CARDIAC ARREST [None]
  - SYNCOPE [None]
  - VERTIGO [None]
